FAERS Safety Report 9372617 (Version 1)
Quarter: 2013Q2

REPORT INFORMATION
  Report Type: Spontaneous
  Country: US (occurrence: US)
  Receive Date: 20130627
  Receipt Date: 20130627
  Transmission Date: 20140414
  Serious: No
  Sender: FDA-Public Use
  Company Number: US-MYLANLABS-2013S1002887

PATIENT
  Age: 42 Year
  Sex: Female

DRUGS (1)
  1. CLOZAPINE TABLETS [Suspect]
     Route: 048
     Dates: start: 20130117, end: 201301

REACTIONS (2)
  - Dizziness [Not Recovered/Not Resolved]
  - Stomatitis [Not Recovered/Not Resolved]
